FAERS Safety Report 17871226 (Version 2)
Quarter: 2020Q2

REPORT INFORMATION
  Report Type: Report from Study
  Country: DE (occurrence: DE)
  Receive Date: 20200608
  Receipt Date: 20200616
  Transmission Date: 20200714
  Serious: Yes (Death, Hospitalization, Other)
  Sender: FDA-Public Use
  Company Number: DE-BAYER-2020-110065

PATIENT
  Age: 78 Year
  Sex: Male

DRUGS (1)
  1. ADEMPAS [Suspect]
     Active Substance: RIOCIGUAT
     Indication: PULMONARY HYPERTENSION
     Dosage: 1.0 MG, TID
     Dates: start: 20200603, end: 20200605

REACTIONS (4)
  - Syncope [Recovering/Resolving]
  - Facial bones fracture [None]
  - Death [Fatal]
  - Fall [None]

NARRATIVE: CASE EVENT DATE: 20200605
